FAERS Safety Report 9710589 (Version 1)
Quarter: 2013Q4

REPORT INFORMATION
  Report Type: Spontaneous
  Country: US (occurrence: US)
  Receive Date: 20131126
  Receipt Date: 20131126
  Transmission Date: 20140711
  Serious: No
  Sender: FDA-Public Use
  Company Number: US-BRISTOL-MYERS SQUIBB COMPANY-18924381

PATIENT
  Age: 59 Year
  Sex: Male
  Weight: 83.9 kg

DRUGS (10)
  1. BYETTA [Suspect]
     Indication: TYPE 2 DIABETES MELLITUS
     Dosage: 4-5 YEARS AGO,5MCG SQ INJ BID,AFTER 1 MONTH,DOSE INCREASED-10MCG SQ,INJ,BID.
     Route: 058
  2. HYDRALAZINE [Concomitant]
  3. LOTENSIN [Concomitant]
  4. BENAZEPRIL HCL [Concomitant]
  5. LASIX [Concomitant]
     Indication: OEDEMA
  6. MINOXIDIL [Concomitant]
  7. AMITRIPTYLINE [Concomitant]
  8. CYCLOBENZAPRINE [Concomitant]
  9. FLEXERIL [Concomitant]
  10. CARDIZEM [Concomitant]

REACTIONS (3)
  - Injection site bruising [Unknown]
  - Weight decreased [Unknown]
  - Drug ineffective [Unknown]
